FAERS Safety Report 9150347 (Version 1)
Quarter: 2013Q1

REPORT INFORMATION
  Report Type: Spontaneous
  Country: US (occurrence: US)
  Receive Date: 20130308
  Receipt Date: 20130308
  Transmission Date: 20140127
  Serious: No
  Sender: FDA-Public Use
  Company Number: US-GLAXOSMITHKLINE-A0978515A

PATIENT
  Age: 53 Year
  Sex: Female

DRUGS (2)
  1. NICORETTE FRESH MINT [Suspect]
     Indication: EX-TOBACCO USER
     Route: 002
  2. ANTIBIOTICS [Concomitant]

REACTIONS (10)
  - Gastrointestinal disorder [Unknown]
  - Irritable bowel syndrome [Not Recovered/Not Resolved]
  - Condition aggravated [Not Recovered/Not Resolved]
  - Flatulence [Not Recovered/Not Resolved]
  - Abdominal distension [Not Recovered/Not Resolved]
  - Diarrhoea [Not Recovered/Not Resolved]
  - Nicotine dependence [Unknown]
  - Drug administration error [Unknown]
  - Hiccups [Recovered/Resolved]
  - Gastrooesophageal reflux disease [Recovered/Resolved]
